FAERS Safety Report 7642641-4 (Version None)
Quarter: 2011Q3

REPORT INFORMATION
  Report Type: 
  Country: None (occurrence: None)
  Receive Date: 20110728
  Receipt Date: 20110719
  Transmission Date: 20111222
  Serious: Yes (Hospitalization)
  Sender: FDA-Public Use
  Company Number: US-AMGEN-KDL270997

PATIENT
  Age: 70 Year
  Sex: Female

DRUGS (4)
  1. METHOTREXATE [Concomitant]
     Dates: start: 20010101
  2. ENBREL [Suspect]
     Indication: RHEUMATOID ARTHRITIS
     Dosage: 50 MG, QWK
     Route: 058
     Dates: start: 20040428
  3. ENBREL [Suspect]
     Dosage: UNK
     Dates: start: 20040428
  4. METHOTREXATE [Concomitant]
     Dosage: 15 MG, QWK
     Route: 048
     Dates: start: 20010101

REACTIONS (17)
  - FALL [None]
  - LACERATION [None]
  - DYSURIA [None]
  - HAEMATURIA [None]
  - GAIT DISTURBANCE [None]
  - EXOSTOSIS [None]
  - DEEP VEIN THROMBOSIS [None]
  - SPINAL OPERATION [None]
  - JOINT DISLOCATION [None]
  - OEDEMA PERIPHERAL [None]
  - INFLAMMATION [None]
  - PAIN [None]
  - URINARY TRACT INFECTION [None]
  - MUSCULOSKELETAL STIFFNESS [None]
  - POLLAKIURIA [None]
  - PULMONARY EMBOLISM [None]
  - JOINT RANGE OF MOTION DECREASED [None]
